FAERS Safety Report 6766600-9 (Version None)
Quarter: 2010Q2

REPORT INFORMATION
  Report Type: 
  Country: None (occurrence: None)
  Receive Date: 20100609
  Receipt Date: 20100527
  Transmission Date: 20101027
  Serious: Yes (Hospitalization)
  Sender: FDA-Public Use
  Company Number: MPS1-1000342

PATIENT
  Age: 4 Year

DRUGS (1)
  1. ALDURAZYME   (LARONIDASE) CONCENTRATE FOR SOLTION FOR INFUSION [Suspect]
     Indication: MUCOPOLYSACCHARIDOSIS I
     Dates: start: 20080301, end: 20091201

REACTIONS (1)
  - ADVERSE EVENT [None]
